FAERS Safety Report 19631777 (Version 1)
Quarter: 2021Q3

REPORT INFORMATION
  Report Type: Spontaneous
  Country: IT (occurrence: IT)
  Receive Date: 20210729
  Receipt Date: 20210729
  Transmission Date: 20211014
  Serious: Yes (Other)
  Sender: FDA-Public Use
  Company Number: IT-009507513-2107ITA007967

PATIENT
  Age: 54 Year
  Sex: Male

DRUGS (2)
  1. KEYTRUDA [Suspect]
     Active Substance: PEMBROLIZUMAB
     Indication: RENAL CANCER
     Dosage: 200 MILLIGRAM, CYCLICAL, DOSAGE FORM: CONCENTRATE FOR SOLUTION FOR INJECTION
     Route: 042
     Dates: start: 20210325, end: 20210607
  2. INLYTA [Concomitant]
     Active Substance: AXITINIB
     Dosage: 10 MILLIGRAM
     Route: 048

REACTIONS (3)
  - Nail disorder [Not Recovered/Not Resolved]
  - Hepatic enzyme increased [Not Recovered/Not Resolved]
  - Decreased appetite [Not Recovered/Not Resolved]

NARRATIVE: CASE EVENT DATE: 20210628
